FAERS Safety Report 4957412-7 (Version None)
Quarter: 2006Q1

REPORT INFORMATION
  Report Type: 
  Country: None (occurrence: None)
  Receive Date: 20060327
  Receipt Date: 20060317
  Transmission Date: 20060701
  Serious: Yes (Other)
  Sender: FDA-Public Use
  Company Number: US-2006-033428

PATIENT
  Age: 43 Year
  Sex: Female
  Weight: 50.8 kg

DRUGS (9)
  1. BETASERON [Suspect]
     Indication: RELAPSING-REMITTING MULTIPLE SCLEROSIS
     Dosage: 8 MIU, EVERY 2D, SUBCUTANEOUS
     Route: 058
     Dates: start: 20020805
  2. MICROGESTIN FE [Concomitant]
  3. AMBIEN [Concomitant]
  4. TESTOSTERONE [Concomitant]
  5. XANAX [Concomitant]
  6. OXYCONTIN [Concomitant]
  7. LEXAPRO [Concomitant]
  8. TOPAMAX [Concomitant]
  9. BENADRYL [Concomitant]

REACTIONS (10)
  - ABDOMINAL PAIN [None]
  - ANOREXIA [None]
  - ASTHENIA [None]
  - DEPRESSION [None]
  - HAEMANGIOMA OF LIVER [None]
  - INJECTION SITE ERYTHEMA [None]
  - INJECTION SITE PAIN [None]
  - INSOMNIA [None]
  - INTESTINAL FUNCTIONAL DISORDER [None]
  - WEIGHT DECREASED [None]
